FAERS Safety Report 7272023-9 (Version None)
Quarter: 2010Q4

REPORT INFORMATION
  Report Type: 
  Country: None (occurrence: None)
  Receive Date: 20101130
  Receipt Date: 20091109
  Transmission Date: 20110411
  Serious: Yes (Hospitalization, Disabling, Other)
  Sender: FDA-Public Use
  Company Number: 2009SP035378

PATIENT
  Age: 35 Year
  Sex: Female
  Weight: 68.0396 kg

DRUGS (11)
  1. NUVARING [Suspect]
     Indication: CONTRACEPTION
     Dates: start: 20070201, end: 20071101
  2. CENTRUM [Concomitant]
  3. TYLENOL [Concomitant]
  4. EXCEDRIN (MIGRAINE) [Concomitant]
  5. CEFDINIR [Concomitant]
  6. PHENAVENT LA [Concomitant]
  7. PROMETHAZINE [Concomitant]
  8. HYDROCODONE BITARTRATE + ACETAMINOPHEN [Concomitant]
  9. OXYCODONE HCL AND ACETAMINOPHEN [Concomitant]
  10. PROMETHAZINE [Concomitant]
  11. ALBUTEROL [Concomitant]

REACTIONS (5)
  - BRONCHITIS [None]
  - CEREBRAL INFARCTION [None]
  - CEREBRAL VENOUS THROMBOSIS [None]
  - MIGRAINE [None]
  - SINUSITIS [None]
